FAERS Safety Report 7649370-1 (Version None)
Quarter: 2011Q3

REPORT INFORMATION
  Report Type: 
  Country: None (occurrence: None)
  Receive Date: 20110721
  Receipt Date: 20110719
  Transmission Date: 20111222
  Serious: Yes (Other)
  Sender: FDA-Public Use
  Company Number: 2011029065

PATIENT
  Age: 52 Year
  Sex: Female
  Weight: 77.1115 kg

DRUGS (14)
  1. LISINOPRIL [Suspect]
     Indication: CONJUNCTIVITIS INFECTIVE
  2. NEXIUM [Concomitant]
  3. ALEVE [Concomitant]
  4. TAURINE (TAURINE) [Concomitant]
  5. TUMS (CALCIUM CARBONATE) [Concomitant]
  6. COZAAR [Concomitant]
  7. MELATONIN (MELATONIN) [Concomitant]
  8. ACETAMINOPHEN [Concomitant]
  9. B COMPLEX (VITAMIN B-KOMPLEX STANDARD) [Concomitant]
  10. CELEBREX [Concomitant]
  11. VITAMIN D [Concomitant]
  12. HIZENTRA [Suspect]
     Indication: IMMUNODEFICIENCY COMMON VARIABLE
     Dosage: 10 G 1X/WEEK, INFUSED 50 ML VIA 3 SITES OVER 1 HR 14 MIN, SUBCUTANEOUS
     Route: 058
     Dates: start: 20110210
  13. ESTRING [Concomitant]
  14. OMEGA 3 (FIRSH OIL) [Concomitant]

REACTIONS (2)
  - CONJUNCTIVITIS [None]
  - COUGH [None]
